FAERS Safety Report 22273331 (Version 2)
Quarter: 2023Q2

REPORT INFORMATION
  Report Type: Spontaneous
  Country: CA (occurrence: CA)
  Receive Date: 20230502
  Receipt Date: 20230530
  Transmission Date: 20230721
  Serious: No
  Sender: FDA-Public Use
  Company Number: CA-Accord-355931

PATIENT
  Age: 77 Year
  Sex: Male
  Weight: 82.7 kg

DRUGS (22)
  1. GEMCITABINE [Suspect]
     Active Substance: GEMCITABINE
     Indication: Diffuse large B-cell lymphoma stage III
     Dosage: 1Q2W
     Route: 042
     Dates: start: 20230120, end: 20230331
  2. OXALIPLATIN [Suspect]
     Active Substance: OXALIPLATIN
     Indication: Diffuse large B-cell lymphoma stage III
     Dosage: 1Q2W
     Route: 042
     Dates: start: 20230120, end: 20230331
  3. RITUXIMAB [Suspect]
     Active Substance: RITUXIMAB
     Indication: Diffuse large B-cell lymphoma stage III
     Dosage: 1Q2W
     Route: 042
     Dates: start: 20230119, end: 20230413
  4. ACEBUTOLOL [Concomitant]
     Active Substance: ACEBUTOLOL
     Dates: start: 20220815
  5. ASPIRIN [Concomitant]
     Active Substance: ASPIRIN
     Dates: start: 20220815
  6. ATIVAN [Concomitant]
     Active Substance: LORAZEPAM
     Dates: start: 20230315
  7. BENADRYL [Concomitant]
     Active Substance: DIPHENHYDRAMINE HYDROCHLORIDE
     Dates: start: 20230316, end: 20230413
  8. DECADRON [Concomitant]
     Active Substance: DEXAMETHASONE
     Dates: start: 20230316, end: 20230413
  9. DUTASTERIDE [Concomitant]
     Active Substance: DUTASTERIDE
     Dates: start: 20220815
  10. FENOFIBRATE [Concomitant]
     Active Substance: FENOFIBRATE
     Dates: start: 20220815
  11. FUROSEMIDE [Concomitant]
     Active Substance: FUROSEMIDE
     Dates: start: 20221116
  12. GLICLAZIDE [Concomitant]
     Active Substance: GLICLAZIDE
     Dates: start: 20220815
  13. LYRICA [Concomitant]
     Active Substance: PREGABALIN
     Dates: start: 20230315
  14. METFORMIN HYDROCHLORIDE [Concomitant]
     Active Substance: METFORMIN HYDROCHLORIDE
     Dates: start: 20220815
  15. NIFEDIPINE [Concomitant]
     Active Substance: NIFEDIPINE
     Dates: start: 20220815
  16. ORPHENADRINE [Concomitant]
     Active Substance: ORPHENADRINE
     Dates: start: 20210922
  17. SEMAGLUTIDE [Concomitant]
     Active Substance: SEMAGLUTIDE
     Dates: start: 20221221
  18. PANTOPRAZOLE [Concomitant]
     Active Substance: PANTOPRAZOLE
     Dates: start: 20220815
  19. TAMSULOSIN [Concomitant]
     Active Substance: TAMSULOSIN
     Dates: start: 20220815
  20. TYLENOL [Concomitant]
     Active Substance: ACETAMINOPHEN
     Dates: start: 20230316, end: 20230413
  21. VALTREX [Concomitant]
     Active Substance: VALACYCLOVIR HYDROCHLORIDE
     Dates: start: 20230118
  22. ZOFRAN [Concomitant]
     Active Substance: ONDANSETRON HYDROCHLORIDE
     Dates: start: 20230316, end: 20230331

REACTIONS (1)
  - Neck pain [Not Recovered/Not Resolved]

NARRATIVE: CASE EVENT DATE: 20230408
